FAERS Safety Report 8497048-7 (Version None)
Quarter: 2012Q3

REPORT INFORMATION
  Report Type: 
  Country: None (occurrence: None)
  Receive Date: 20120709
  Receipt Date: 20120601
  Transmission Date: 20120928
  Serious: Yes (Other)
  Sender: FDA-Public Use
  Company Number: US-AMGEN-USASP2012034498

PATIENT
  Age: 62 Year
  Sex: Male

DRUGS (2)
  1. ENBREL [Suspect]
     Indication: PRODUCT USED FOR UNKNOWN INDICATION
     Dosage: UNK
  2. PROPOXYPHENE HCL [Concomitant]
     Dosage: UNK

REACTIONS (3)
  - CARDIAC FAILURE CONGESTIVE [None]
  - PAIN [None]
  - MUSCULOSKELETAL STIFFNESS [None]
